FAERS Safety Report 5819315-5 (Version None)
Quarter: 2008Q3

REPORT INFORMATION
  Report Type: 
  Country: None (occurrence: None)
  Receive Date: 20080723
  Receipt Date: 20080714
  Transmission Date: 20090109
  Serious: Yes (Other)
  Sender: FDA-Public Use
  Company Number: US-MERCK-0807USA02649

PATIENT
  Age: 63 Year
  Sex: Female

DRUGS (2)
  1. DECADRON SRC [Suspect]
     Route: 048
     Dates: end: 20070101
  2. THALOMID [Suspect]
     Indication: MULTIPLE MYELOMA
     Route: 048
     Dates: start: 20070719, end: 20070925

REACTIONS (4)
  - ADVERSE EVENT [None]
  - DELIRIUM [None]
  - HALLUCINATION [None]
  - PARANOIA [None]
